FAERS Safety Report 23470157 (Version 1)
Quarter: 2024Q1

REPORT INFORMATION
  Report Type: Other
  Country: CN (occurrence: None)
  Receive Date: 20240202
  Receipt Date: 20240202
  Transmission Date: 20240410
  Serious: Yes (Hospitalization)
  Sender: FDA-Public Use
  Company Number: None

PATIENT
  Age: 49 Year
  Sex: Female
  Weight: 50.0 kg

DRUGS (1)
  1. FULVESTRANT [Suspect]
     Active Substance: FULVESTRANT
     Indication: Breast cancer
     Dosage: 0.5G,QD
     Route: 030
     Dates: start: 20240104, end: 20240104

REACTIONS (1)
  - Granulocyte count decreased [Recovered/Resolved]

NARRATIVE: CASE EVENT DATE: 20240117
